FAERS Safety Report 11994792 (Version 2)
Quarter: 2016Q1

REPORT INFORMATION
  Report Type: Spontaneous
  Country: US (occurrence: US)
  Receive Date: 20160203
  Receipt Date: 20160314
  Transmission Date: 20160526
  Serious: No
  Sender: FDA-Public Use
  Company Number: US-SHIRE-US201601200

PATIENT
  Sex: Female

DRUGS (4)
  1. LIALDA [Suspect]
     Active Substance: MESALAMINE
     Indication: FOETAL EXPOSURE DURING PREGNANCY
     Dosage: 4.8 G (FOUR 1.2 G TABLETS), 1X/DAY:QD
     Route: 063
  2. CANASA [Concomitant]
     Active Substance: MESALAMINE
     Indication: EXPOSURE DURING BREAST FEEDING
  3. LIALDA [Suspect]
     Active Substance: MESALAMINE
     Indication: EXPOSURE DURING BREAST FEEDING
  4. CANASA [Concomitant]
     Active Substance: MESALAMINE
     Indication: FOETAL EXPOSURE DURING PREGNANCY
     Dosage: 1000 MG, AS REQ^D
     Route: 063

REACTIONS (3)
  - Foetal exposure during pregnancy [Recovered/Resolved]
  - Product quality issue [Unknown]
  - Exposure during breast feeding [Not Recovered/Not Resolved]

NARRATIVE: CASE EVENT DATE: 201409
